FAERS Safety Report 17848176 (Version 8)
Quarter: 2022Q2

REPORT INFORMATION
  Report Type: Report from Study
  Country: US (occurrence: US)
  Receive Date: 20200601
  Receipt Date: 20220629
  Transmission Date: 20220721
  Serious: Yes (Hospitalization)
  Sender: FDA-Public Use
  Company Number: US-TAKEDA-2020TUS024317

PATIENT
  Age: 63 Year
  Sex: Female
  Weight: 68 kg

DRUGS (7)
  1. PONATINIB [Suspect]
     Active Substance: PONATINIB
     Indication: Chronic myeloid leukaemia
     Dosage: 15 MILLIGRAM, QD
     Route: 065
     Dates: start: 20200430
  2. PONATINIB [Suspect]
     Active Substance: PONATINIB
     Dosage: 15 MILLIGRAM
     Route: 065
  3. ZOFRAN [Concomitant]
     Active Substance: ONDANSETRON HYDROCHLORIDE
     Dosage: UNK
     Route: 065
  4. WELLBUTRIN [Concomitant]
     Active Substance: BUPROPION HYDROCHLORIDE
     Indication: Antidepressant therapy
     Dosage: 200 MILLIGRAM, 2/WEEK
     Route: 065
  5. SYNTHROID [Concomitant]
     Active Substance: LEVOTHYROXINE SODIUM
     Dosage: UNK
     Route: 065
  6. GABAPENTIN [Concomitant]
     Active Substance: GABAPENTIN
     Dosage: 300 MILLIGRAM, QID
     Route: 065
  7. OXYCODONE [Concomitant]
     Active Substance: OXYCODONE
     Indication: Pain
     Dosage: UNK
     Route: 065

REACTIONS (27)
  - Mental status changes [Recovered/Resolved]
  - Urinary tract infection [Unknown]
  - Adverse event [Unknown]
  - Platelet count decreased [Not Recovered/Not Resolved]
  - Nausea [Recovered/Resolved]
  - Fatigue [Not Recovered/Not Resolved]
  - Vomiting [Recovered/Resolved]
  - White blood cell count decreased [Unknown]
  - Herpes zoster [Recovered/Resolved]
  - Constipation [Unknown]
  - Haemoglobin decreased [Recovering/Resolving]
  - Drug hypersensitivity [Unknown]
  - Polymerase chain reaction positive [Unknown]
  - Trigeminal neuralgia [Unknown]
  - Toothache [Unknown]
  - Breast mass [Unknown]
  - Cerebral disorder [Unknown]
  - COVID-19 [Recovered/Resolved]
  - Feeling abnormal [Recovering/Resolving]
  - Eating disorder [Recovered/Resolved]
  - Vulvovaginal pain [Unknown]
  - Renal disorder [Unknown]
  - Memory impairment [Unknown]
  - Speech disorder [Unknown]
  - Eyelid disorder [Unknown]
  - Product dose omission issue [Unknown]
  - Off label use [Unknown]

NARRATIVE: CASE EVENT DATE: 20200505
